FAERS Safety Report 13519331 (Version 1)
Quarter: 2017Q2

REPORT INFORMATION
  Report Type: Spontaneous
  Country: US (occurrence: US)
  Receive Date: 20170505
  Receipt Date: 20170505
  Transmission Date: 20170830
  Serious: No
  Sender: FDA-Public Use
  Company Number: US-PFIZER INC-2016572561

PATIENT
  Age: 70 Year
  Sex: Female

DRUGS (14)
  1. TESSALON [Concomitant]
     Active Substance: BENZONATATE
     Indication: COUGH
     Dosage: 100 MG, AS NEEDED (THREE X DAY AS NEEDED)
     Route: 048
     Dates: start: 20161024
  2. PROBIOTIC [Concomitant]
     Active Substance: PROBIOTICS NOS
     Dosage: 1 DF, DAILY
     Route: 048
     Dates: start: 20140922
  3. STRONTIUM CHLORIDE [Concomitant]
     Active Substance: STRONTIUM CHLORIDE
     Dosage: UNK UNK, DAILY
     Dates: start: 20140922
  4. MULTIVITAMINS [Concomitant]
     Active Substance: VITAMINS
     Dosage: UNK
     Dates: start: 20110324
  5. CALCIUM CARBONATE AND VITAMIN D [Concomitant]
     Active Substance: CALCIUM CARBONATE\VITAMIN D
     Dosage: UNK, 2X/DAY (CALCIUM CARBONATE: 600-VITAMIN D: 400 MG )
     Route: 048
     Dates: start: 20110324
  6. BIOTIN [Concomitant]
     Active Substance: BIOTIN
     Dosage: 1 DF, 2X/DAY
     Route: 048
     Dates: start: 20160629
  7. IBRANCE [Suspect]
     Active Substance: PALBOCICLIB
     Indication: BREAST CANCER FEMALE
     Dosage: 125 MG, CYCLIC (3 WEEKS ON, 1 WEEK OFF, WITH FOOD)
     Route: 048
     Dates: start: 20150617
  8. LEVOTHYROXINE SODIUM. [Concomitant]
     Active Substance: LEVOTHYROXINE SODIUM
     Dosage: 125 UG, DAILY
     Route: 048
     Dates: start: 20131223
  9. VITAMIN C [Concomitant]
     Active Substance: ASCORBIC ACID
     Dosage: 1000 MG, 2X/DAY
     Route: 048
     Dates: start: 20110412
  10. TRANSFER FACTOR [Concomitant]
     Dosage: 1 DF, 2X/DAY
     Route: 048
     Dates: start: 20131211
  11. VITAMIN D3 [Concomitant]
     Active Substance: CHOLECALCIFEROL
     Dosage: 5000 IU, DAILY
     Route: 048
     Dates: start: 20120919
  12. IBUPROFEN. [Concomitant]
     Active Substance: IBUPROFEN
     Indication: PAIN
     Dosage: 200 MG, AS NEEDED (TAKE 1-2 TABLETS)
     Route: 048
     Dates: start: 20150624
  13. GREEN TEA EXTRACT [Concomitant]
     Dosage: 1 DF, 2X/DAY
     Route: 048
     Dates: start: 20160729
  14. ONDANSETRON HCL [Concomitant]
     Active Substance: ONDANSETRON HYDROCHLORIDE
     Indication: NAUSEA
     Dosage: 8 MG, AS NEEDED (TAKE ONE EVERY 8 TO 12 HOURS )
     Dates: start: 20150624

REACTIONS (1)
  - Blood count abnormal [Unknown]
